FAERS Safety Report 15220307 (Version 4)
Quarter: 2018Q3

REPORT INFORMATION
  Report Type: Report from Study
  Country: GB (occurrence: GB)
  Receive Date: 20180731
  Receipt Date: 20180831
  Transmission Date: 20181010
  Serious: Yes (Hospitalization)
  Sender: FDA-Public Use
  Company Number: GB-ROCHE-2150128

PATIENT
  Sex: Male

DRUGS (1)
  1. ROACTEMRA [Suspect]
     Active Substance: TOCILIZUMAB
     Indication: RHEUMATOID ARTHRITIS
     Route: 058
     Dates: start: 20180524

REACTIONS (10)
  - Paraesthesia [Unknown]
  - Musculoskeletal stiffness [Unknown]
  - Back pain [Unknown]
  - Oropharyngeal pain [Unknown]
  - Rheumatoid arthritis [Unknown]
  - Skin hyperpigmentation [Unknown]
  - Gait inability [Unknown]
  - Hypoaesthesia [Unknown]
  - Drug ineffective [Unknown]
  - Finger deformity [Unknown]
